FAERS Safety Report 7833381-7 (Version None)
Quarter: 2011Q4

REPORT INFORMATION
  Report Type: 
  Country: None (occurrence: None)
  Receive Date: 20111024
  Receipt Date: 20111019
  Transmission Date: 20120403
  Serious: No
  Sender: FDA-Public Use
  Company Number: US-PFIZER INC-2011252015

PATIENT
  Sex: Female

DRUGS (1)
  1. ADRIAMYCIN PFS [Suspect]
     Indication: BREAST CANCER STAGE IV
     Dosage: UNK, EVERY WEEK ON FRIDAY

REACTIONS (1)
  - FATIGUE [None]
